FAERS Safety Report 8812289 (Version 1)
Quarter: 2012Q4

REPORT INFORMATION
  Report Type: Spontaneous
  Country: IT (occurrence: None)
  Receive Date: 20120925
  Receipt Date: 20120925
  Transmission Date: 20130627
  Serious: Yes (Death)
  Sender: FDA-Public Use
  Company Number: FK201202712

PATIENT
  Age: 77 Year
  Sex: Male

DRUGS (10)
  1. AMIODARONE HYDROCHLORIDE [Suspect]
     Indication: ATRIAL FIBRILLATION
     Route: 040
  2. AMIODARONE HYDROCHLORIDE [Suspect]
     Indication: ATRIAL FIBRILLATION
     Route: 042
  3. AMIODARONE HYDROCHLORIDE [Suspect]
     Indication: ATRIAL FIBRILLATION
     Route: 042
  4. AMIODARONE HYDROCHLORIDE [Suspect]
     Indication: ATRIAL FIBRILLATION
     Route: 042
  5. AMIODARONE HYDROCHLORIDE [Suspect]
     Indication: ATRIAL FIBRILLATION
     Route: 042
  6. AMIODARONE HYDROCHLORIDE [Suspect]
     Indication: ATRIAL FIBRILLATION
     Dosage: nasojejunal tube
  7. TEICOPLANIN [Suspect]
     Indication: BACTERIAL INFECTION
  8. METHYLPREDNISOLONE [Suspect]
     Indication: PRODUCT USED FOR UNKNOWN INDICATION
     Route: 042
  9. CIPROFLOXACIN [Concomitant]
  10. AMIKACIN [Concomitant]

REACTIONS (11)
  - Pulmonary toxicity [None]
  - Hypoxia [None]
  - Enterobacter test positive [None]
  - Electrocardiogram QT prolonged [None]
  - Haemodynamic instability [None]
  - Atrial fibrillation [None]
  - Post procedural complication [None]
  - Pulmonary fibrosis [None]
  - Interstitial lung disease [None]
  - Obliterative bronchiolitis [None]
  - Diffuse alveolar damage [None]
